FAERS Safety Report 18605487 (Version 1)
Quarter: 2020Q4

REPORT INFORMATION
  Report Type: Spontaneous
  Country: US (occurrence: US)
  Receive Date: 20201211
  Receipt Date: 20201211
  Transmission Date: 20210114
  Serious: Yes (Hospitalization, Other)
  Sender: FDA-Public Use
  Company Number: US-LUPIN PHARMACEUTICALS INC.-2020-08563

PATIENT
  Age: 29 Year
  Sex: Female

DRUGS (29)
  1. AZITHROMYCIN ANHYDROUS. [Suspect]
     Active Substance: AZITHROMYCIN ANHYDROUS
     Indication: ENTEROBACTER PNEUMONIA
  2. CASPOFUNGIN [Suspect]
     Active Substance: CASPOFUNGIN
     Indication: ENTEROBACTER PNEUMONIA
  3. CEFEPIME [Suspect]
     Active Substance: CEFEPIME HYDROCHLORIDE
     Indication: PNEUMONIA STAPHYLOCOCCAL
     Dosage: UNK
     Route: 065
  4. PROPOFOL. [Suspect]
     Active Substance: PROPOFOL
     Indication: SEDATIVE THERAPY
     Dosage: UNK
     Route: 065
  5. LEVETIRACETAM. [Suspect]
     Active Substance: LEVETIRACETAM
     Indication: PRODUCT USED FOR UNKNOWN INDICATION
     Dosage: UNK
     Route: 065
  6. CASPOFUNGIN [Suspect]
     Active Substance: CASPOFUNGIN
     Indication: PNEUMONIA STAPHYLOCOCCAL
     Dosage: UNK
     Route: 065
  7. HYDROMORPHONE [Suspect]
     Active Substance: HYDROMORPHONE
     Indication: DRUG WITHDRAWAL SYNDROME
     Dosage: FORMULATION: DRIP
     Route: 065
  8. VANCOMYCIN [Suspect]
     Active Substance: VANCOMYCIN
     Indication: PNEUMONIA STAPHYLOCOCCAL
     Dosage: UNK
     Route: 065
  9. CEFTRIAXONE. [Suspect]
     Active Substance: CEFTRIAXONE
     Indication: ENTEROBACTER PNEUMONIA
  10. AZITHROMYCIN ANHYDROUS. [Suspect]
     Active Substance: AZITHROMYCIN ANHYDROUS
     Indication: PNEUMONIA STAPHYLOCOCCAL
     Dosage: UNK
     Route: 065
  11. GABAPENTIN. [Suspect]
     Active Substance: GABAPENTIN
     Indication: PRODUCT USED FOR UNKNOWN INDICATION
     Dosage: UNK
     Route: 065
  12. VANCOMYCIN [Suspect]
     Active Substance: VANCOMYCIN
     Indication: ENTEROBACTER PNEUMONIA
  13. VANCOMYCIN [Suspect]
     Active Substance: VANCOMYCIN
     Indication: EVIDENCE BASED TREATMENT
  14. CEFTRIAXONE. [Suspect]
     Active Substance: CEFTRIAXONE
     Indication: PNEUMONIA STAPHYLOCOCCAL
     Dosage: UNK
     Route: 065
  15. FENTANYL. [Suspect]
     Active Substance: FENTANYL
     Indication: SEDATIVE THERAPY
     Dosage: UNK
     Route: 065
  16. PIPERACILLIN/TAZOBACTAM [Suspect]
     Active Substance: PIPERACILLIN SODIUM\TAZOBACTAM SODIUM
     Indication: EVIDENCE BASED TREATMENT
  17. NOREPINEPHRINE. [Suspect]
     Active Substance: NOREPINEPHRINE
     Indication: HYPOTENSION
     Dosage: UNK
     Route: 065
  18. MIDAZOLAM. [Suspect]
     Active Substance: MIDAZOLAM
     Indication: SEDATIVE THERAPY
     Dosage: UNK
     Route: 065
  19. MEROPENEM. [Suspect]
     Active Substance: MEROPENEM
     Indication: ENTEROBACTER PNEUMONIA
  20. CEFEPIME [Suspect]
     Active Substance: CEFEPIME HYDROCHLORIDE
     Indication: ENTEROBACTER PNEUMONIA
  21. ALBUTEROL SULFATE. [Suspect]
     Active Substance: ALBUTEROL SULFATE
     Indication: PRODUCT USED FOR UNKNOWN INDICATION
     Dosage: UNK
     Route: 065
  22. ALPRAZOLAM. [Suspect]
     Active Substance: ALPRAZOLAM
     Indication: PRODUCT USED FOR UNKNOWN INDICATION
     Dosage: UNK
     Route: 065
  23. PIPERACILLIN/TAZOBACTAM [Suspect]
     Active Substance: PIPERACILLIN SODIUM\TAZOBACTAM SODIUM
     Indication: ENTEROBACTER PNEUMONIA
     Dosage: UNK
     Route: 065
  24. PIPERACILLIN/TAZOBACTAM [Suspect]
     Active Substance: PIPERACILLIN SODIUM\TAZOBACTAM SODIUM
     Indication: PNEUMONIA STAPHYLOCOCCAL
  25. MEROPENEM. [Suspect]
     Active Substance: MEROPENEM
     Indication: PNEUMONIA STAPHYLOCOCCAL
     Dosage: UNK
     Route: 065
  26. METHADONE [Suspect]
     Active Substance: METHADONE HYDROCHLORIDE
     Indication: DRUG WITHDRAWAL SYNDROME
     Dosage: FORMULATION: DRIP
     Route: 065
  27. QUETIAPINE FUMARATE. [Suspect]
     Active Substance: QUETIAPINE FUMARATE
     Indication: PRODUCT USED FOR UNKNOWN INDICATION
     Dosage: UNK
     Route: 065
  28. BUPRENORPHINE. [Suspect]
     Active Substance: BUPRENORPHINE
     Indication: PRODUCT USED FOR UNKNOWN INDICATION
     Dosage: UNK
     Route: 065
  29. MIDAZOLAM. [Suspect]
     Active Substance: MIDAZOLAM
     Indication: DRUG WITHDRAWAL SYNDROME

REACTIONS (1)
  - Exposure during pregnancy [Unknown]
